FAERS Safety Report 18236082 (Version 3)
Quarter: 2020Q3

REPORT INFORMATION
  Report Type: Report from Study
  Country: US (occurrence: US)
  Receive Date: 20200906
  Receipt Date: 20200929
  Transmission Date: 20201103
  Serious: No
  Sender: FDA-Public Use
  Company Number: US-B.I. PHARMACEUTICALS,INC./RIDGEFIELD-2020-BI-045138

PATIENT
  Age: 78 Year
  Sex: Female

DRUGS (2)
  1. GILOTRIF [Suspect]
     Active Substance: AFATINIB
  2. GILOTRIF [Suspect]
     Active Substance: AFATINIB
     Indication: LUNG NEOPLASM MALIGNANT
     Route: 048
     Dates: start: 20200825

REACTIONS (8)
  - Eating disorder [Unknown]
  - Fatigue [Unknown]
  - Tremor [Unknown]
  - Asthenia [Unknown]
  - Pollakiuria [Unknown]
  - Neuropathy peripheral [Unknown]
  - Cystitis [Unknown]
  - Nausea [Unknown]

NARRATIVE: CASE EVENT DATE: 20200825
